FAERS Safety Report 15645762 (Version 1)
Quarter: 2018Q4

REPORT INFORMATION
  Report Type: Spontaneous
  Country: CZ (occurrence: CZ)
  Receive Date: 20181121
  Receipt Date: 20181121
  Transmission Date: 20190205
  Serious: Yes (Other)
  Sender: FDA-Public Use
  Company Number: CZ-009507513-1810CZE010821

PATIENT
  Age: 66 Year
  Sex: Male
  Weight: 85 kg

DRUGS (5)
  1. TARKA [Concomitant]
     Active Substance: TRANDOLAPRIL\VERAPAMIL HYDROCHLORIDE
     Indication: HYPERTENSION
     Dosage: TOTAL DAILY DOSE: 180/2 MG, QD
     Dates: start: 200406
  2. STADAMET [Concomitant]
     Active Substance: METFORMIN HYDROCHLORIDE
     Indication: HYPERLIPIDAEMIA
     Dosage: TOTAL DAILY DOSE: 1000 MG, QD
     Dates: start: 200406
  3. LEVEMIR [Concomitant]
     Active Substance: INSULIN DETEMIR
     Indication: DIABETES MELLITUS
     Dosage: TOTAL DAILY DOSE: 0-0-0-24J, QD
     Route: 058
     Dates: start: 200910
  4. KEYTRUDA [Suspect]
     Active Substance: PEMBROLIZUMAB
     Indication: MALIGNANT MELANOMA
     Dosage: 150 MILLIGRAM (IT WAS THE 4TH APPLICATION), Q3W
     Dates: start: 20180619, end: 20180904
  5. NOVORAPID [Concomitant]
     Active Substance: INSULIN ASPART
     Indication: DIABETES MELLITUS
     Dosage: TOTAL DAILY DOSE: 14J- 14J- 14J, TID
     Route: 058
     Dates: start: 200910

REACTIONS (4)
  - Colitis [Recovering/Resolving]
  - Immune-mediated adverse reaction [Recovering/Resolving]
  - Diarrhoea [Recovering/Resolving]
  - Thrombocytopenia [Unknown]

NARRATIVE: CASE EVENT DATE: 20181012
